FAERS Safety Report 10256500 (Version 1)
Quarter: 2014Q2

REPORT INFORMATION
  Report Type: Spontaneous
  Country: US (occurrence: US)
  Receive Date: 20140624
  Receipt Date: 20140624
  Transmission Date: 20141212
  Serious: No
  Sender: FDA-Public Use
  Company Number: US-ZOGENIX, INC.-2012ZX000236

PATIENT
  Age: 55 Year
  Sex: Female
  Weight: 50.85 kg

DRUGS (6)
  1. SUMAVEL DOSEPRO [Suspect]
     Indication: MIGRAINE
     Dates: start: 20120621, end: 20120621
  2. SUMAVEL DOSEPRO [Suspect]
  3. OMNARIS [Concomitant]
     Indication: SEASONAL ALLERGY
  4. ADVAIR [Concomitant]
     Indication: SEASONAL ALLERGY
  5. XANAX [Concomitant]
     Indication: ANXIETY
     Route: 048
  6. KLONOPIN [Concomitant]
     Indication: PRODUCT USED FOR UNKNOWN INDICATION
     Route: 048

REACTIONS (4)
  - Injection site bruising [Recovered/Resolved]
  - Injection site urticaria [Not Recovered/Not Resolved]
  - Incorrect dose administered by device [Recovered/Resolved]
  - Injection site haemorrhage [Recovered/Resolved]
